FAERS Safety Report 24243638 (Version 1)
Quarter: 2024Q3

REPORT INFORMATION
  Report Type: Spontaneous
  Country: AT (occurrence: AT)
  Receive Date: 20240823
  Receipt Date: 20240823
  Transmission Date: 20241017
  Serious: Yes (Death, Hospitalization, Other)
  Sender: AMGEN
  Company Number: AT-AMGEN-AUTSP2024163516

PATIENT

DRUGS (5)
  1. FILGRASTIM [Suspect]
     Active Substance: FILGRASTIM
     Indication: Leukopenia
     Dosage: UNK
     Route: 065
  2. FILGRASTIM [Suspect]
     Active Substance: FILGRASTIM
     Indication: Off label use
  3. GRAFALON [Concomitant]
     Active Substance: LAPINE T-LYMPHOCYTE IMMUNE GLOBULIN
     Dosage: 1.5 MILLIGRAM/KILOGRAM, QD (WITH A DAILY MAXIMUM OF 160 MG)
     Route: 065
  4. PREDNISOLONE [Concomitant]
     Active Substance: PREDNISOLONE
     Dosage: 250 MILLIGRAM
     Route: 042
  5. TACROLIMUS [Concomitant]
     Active Substance: TACROLIMUS
     Dosage: 0.1 MILLIGRAM/KILOGRAM

REACTIONS (20)
  - Death [Fatal]
  - Multiple organ dysfunction syndrome [Fatal]
  - Enterococcal sepsis [Fatal]
  - Subdural haemorrhage [Fatal]
  - Cerebrovascular accident [Fatal]
  - Cardiac failure [Fatal]
  - Acute hepatic failure [Fatal]
  - Liver transplant rejection [Fatal]
  - Acute kidney injury [Fatal]
  - Chronic kidney disease [Fatal]
  - Sepsis [Fatal]
  - Fall [Fatal]
  - Bacterial infection [Unknown]
  - Neoplasm [Unknown]
  - Hepatocellular carcinoma [Unknown]
  - Pneumonia bacterial [Unknown]
  - Postoperative wound infection [Unknown]
  - Cholangitis sclerosing [Unknown]
  - Biliary ischaemia [Unknown]
  - Off label use [Unknown]
